FAERS Safety Report 9553781 (Version 2)
Quarter: 2013Q4

REPORT INFORMATION
  Report Type: Report from Study
  Country: TW (occurrence: TW)
  Receive Date: 20130925
  Receipt Date: 20131004
  Transmission Date: 20140711
  Serious: Yes (Death)
  Sender: FDA-Public Use
  Company Number: TW-ABBVIE-13P-153-1150921-00

PATIENT
  Age: 55 Year
  Sex: Male
  Weight: 51.7 kg

DRUGS (4)
  1. HUMIRA [Suspect]
     Indication: CROHN^S DISEASE
     Route: 058
     Dates: start: 20130820, end: 20130821
  2. PRESON [Concomitant]
     Indication: CROHN^S DISEASE
     Route: 048
     Dates: start: 20130618, end: 20130903
  3. PENTASA [Concomitant]
     Indication: CROHN^S DISEASE
     Route: 048
     Dates: start: 20130618, end: 20130903
  4. NEXIUM [Concomitant]
     Indication: CROHN^S DISEASE
     Route: 048
     Dates: start: 20130702, end: 20130903

REACTIONS (2)
  - Cardiopulmonary failure [Fatal]
  - Sepsis [Fatal]
